FAERS Safety Report 12723882 (Version 2)
Quarter: 2016Q3

REPORT INFORMATION
  Report Type: Report from Study
  Country: HU (occurrence: HU)
  Receive Date: 20160908
  Receipt Date: 20160923
  Transmission Date: 20161109
  Serious: Yes (Hospitalization, Other)
  Sender: FDA-Public Use
  Company Number: HU-ROCHE-1826760

PATIENT

DRUGS (3)
  1. RIBAVIRIN. [Suspect]
     Active Substance: RIBAVIRIN
     Indication: CHRONIC HEPATITIS C
     Route: 065
  2. BOCEPREVIR [Suspect]
     Active Substance: BOCEPREVIR
     Indication: CHRONIC HEPATITIS C
     Route: 065
  3. PEG-INTERFERON ALFA 2A [Suspect]
     Active Substance: PEGINTERFERON ALFA-2A
     Indication: CHRONIC HEPATITIS C
     Route: 065

REACTIONS (26)
  - Asthenia [Unknown]
  - Influenza like illness [Unknown]
  - Facial paralysis [Unknown]
  - Anaemia [Unknown]
  - Dyspnoea [Unknown]
  - Helicobacter infection [Unknown]
  - Neutropenia [Unknown]
  - Pyrexia [Unknown]
  - Alanine aminotransferase increased [Unknown]
  - Electrocardiogram QT prolonged [Unknown]
  - Urinary tract infection [Unknown]
  - Crohn^s disease [Unknown]
  - Depression [Unknown]
  - Thrombocytopenia [Unknown]
  - Injection site reaction [Unknown]
  - Gastrointestinal disorder [Unknown]
  - Tooth loss [Unknown]
  - Generalised oedema [Unknown]
  - Gingivitis [Unknown]
  - Fatigue [Unknown]
  - Weight decreased [Unknown]
  - Diarrhoea [Unknown]
  - Agranulocytosis [Unknown]
  - Dermatitis [Unknown]
  - Alopecia [Unknown]
  - Dysgeusia [Unknown]
